FAERS Safety Report 6905188-6 (Version None)
Quarter: 2010Q3

REPORT INFORMATION
  Report Type: 
  Country: None (occurrence: None)
  Receive Date: 20100708
  Receipt Date: 20091230
  Transmission Date: 20110219
  Serious: Yes (Hospitalization)
  Sender: FDA-Public Use
  Company Number: 2007053776

PATIENT
  Age: 61 Year
  Sex: Female
  Weight: 58.5 kg

DRUGS (2)
  1. CHANTIX [Suspect]
     Dosage: 0.5 MG, 1X/DAY
     Dates: start: 20070101
  2. LIPITOR [Concomitant]

REACTIONS (4)
  - DEPRESSION [None]
  - NAUSEA [None]
  - NERVOUSNESS [None]
  - TACHYPHRENIA [None]
